FAERS Safety Report 9644142 (Version 2)
Quarter: 2013Q4

REPORT INFORMATION
  Report Type: Report from Study
  Country: ES (occurrence: ES)
  Receive Date: 20131024
  Receipt Date: 20131120
  Transmission Date: 20140711
  Serious: Yes (Hospitalization)
  Sender: FDA-Public Use
  Company Number: ES-PFIZER INC-2013301315

PATIENT
  Age: 65 Year
  Sex: Female

DRUGS (6)
  1. ALDACTONE [Suspect]
     Indication: ASCITES
     Dosage: 100 MG, 1X/DAY
     Route: 048
     Dates: start: 201205, end: 20120701
  2. AMLODIPINE BESILATE [Interacting]
     Indication: HYPERTENSION
     Dosage: 10 MG, 1X/DAY
     Route: 048
     Dates: start: 201105
  3. LOSARTAN POTASSIUM [Interacting]
     Indication: HYPERTENSION
     Dosage: 50 MG, 1X/DAY
     Route: 048
     Dates: start: 201205
  4. FUROSEMIDE [Interacting]
     Indication: ASCITES
     Dosage: 40 MG, 1X/DAY
     Route: 048
     Dates: start: 201205, end: 20120701
  5. GABAPENTIN [Concomitant]
     Indication: POLYNEUROPATHY
     Dosage: 300 MG, 3X/DAY
     Route: 048
     Dates: start: 201205
  6. LORMETAZEPAM [Concomitant]
     Dosage: 1 MG, 1X/DAY
     Route: 048
     Dates: start: 201012

REACTIONS (4)
  - Drug interaction [Unknown]
  - Hyperkalaemia [Recovered/Resolved]
  - Renal failure acute [Recovered/Resolved]
  - Hyponatraemia [Recovered/Resolved]
